FAERS Safety Report 25664390 (Version 1)
Quarter: 2025Q3

REPORT INFORMATION
  Report Type: Spontaneous
  Country: CA (occurrence: CA)
  Receive Date: 20250811
  Receipt Date: 20250811
  Transmission Date: 20251020
  Serious: Yes (Other)
  Sender: ANI
  Company Number: CA-ANIPHARMA-2025-CA-002467

PATIENT
  Age: 51 Year
  Sex: Female

DRUGS (7)
  1. ARIMIDEX [Suspect]
     Active Substance: ANASTROZOLE
     Indication: Product used for unknown indication
     Route: 048
  2. FASLODEX [Suspect]
     Active Substance: FULVESTRANT
     Route: 030
  3. DEVICE [Suspect]
     Active Substance: DEVICE
  4. EVEROLIMUS [Suspect]
     Active Substance: EVEROLIMUS
     Route: 048
  5. PALBOCICLIB [Suspect]
     Active Substance: PALBOCICLIB
     Route: 048
  6. LETROZOLE [Suspect]
     Active Substance: LETROZOLE
     Route: 048
  7. RUXOLITINIB [Suspect]
     Active Substance: RUXOLITINIB

REACTIONS (6)
  - Drug ineffective [Unknown]
  - Drug intolerance [Unknown]
  - Hot flush [Unknown]
  - Metastases to central nervous system [Unknown]
  - Metastases to liver [Unknown]
  - Product dose omission issue [Unknown]
